FAERS Safety Report 7962074-0 (Version None)
Quarter: 2011Q4

REPORT INFORMATION
  Report Type: 
  Country: None (occurrence: None)
  Receive Date: 20111207
  Receipt Date: 20111128
  Transmission Date: 20120403
  Serious: Yes (Hospitalization)
  Sender: FDA-Public Use
  Company Number: DE-TEVA-311015GER

PATIENT
  Age: 74 Year
  Sex: Male

DRUGS (15)
  1. SIMVASTATIN [Concomitant]
     Route: 048
  2. PANTOPRAZOLE SODIUM [Concomitant]
     Route: 048
  3. MOVIPREP [Concomitant]
     Route: 048
  4. FORMOTEROL FUMARATE [Concomitant]
     Route: 055
  5. ASPIRIN [Concomitant]
     Route: 048
  6. EMSELEX [Concomitant]
     Route: 048
  7. ENOXAPARIN SODIUM [Concomitant]
     Route: 058
  8. LANTUS [Concomitant]
  9. MIRTAZAPINE [Suspect]
     Route: 048
     Dates: start: 20110504, end: 20110505
  10. DIOVAN [Concomitant]
     Route: 048
  11. ALLOPURINOL [Concomitant]
     Route: 048
  12. TAMSULOSIN HCL [Concomitant]
     Route: 048
  13. PLAVIX [Concomitant]
     Route: 048
  14. VICTOZA [Concomitant]
     Route: 048
  15. LEVOTHYROXINE SODIUM [Concomitant]
     Route: 048

REACTIONS (1)
  - ELECTROCARDIOGRAM QT PROLONGED [None]
